FAERS Safety Report 25130395 (Version 1)
Quarter: 2025Q1

REPORT INFORMATION
  Report Type: Spontaneous
  Country: IL (occurrence: IL)
  Receive Date: 20250327
  Receipt Date: 20250327
  Transmission Date: 20250408
  Serious: Yes (Hospitalization)
  Sender: SANOFI AVENTIS
  Company Number: IL-SA-2025SA088709

PATIENT
  Age: 72 Year
  Sex: Male

DRUGS (8)
  1. PLAVIX [Suspect]
     Active Substance: CLOPIDOGREL BISULFATE
     Dates: start: 20250224
  2. ASPIRIN [Concomitant]
     Active Substance: ASPIRIN
  3. CEFAZOLIN [Concomitant]
     Active Substance: CEFAZOLIN
     Route: 042
  4. CONTROLOC [Concomitant]
     Active Substance: PANTOPRAZOLE SODIUM
     Route: 042
  5. Fusid [Concomitant]
  6. NORVASC [Concomitant]
     Active Substance: AMLODIPINE BESYLATE
  7. VENOFER [Concomitant]
     Active Substance: IRON SUCROSE
  8. VITAMIN D3 [Concomitant]
     Active Substance: CHOLECALCIFEROL

REACTIONS (2)
  - Haemoglobin decreased [Unknown]
  - Blood potassium decreased [Unknown]
